FAERS Safety Report 5394691-9 (Version None)
Quarter: 2007Q3

REPORT INFORMATION
  Report Type: 
  Country: None (occurrence: None)
  Receive Date: 20070723
  Receipt Date: 20070712
  Transmission Date: 20080115
  Serious: Yes (Other)
  Sender: FDA-Public Use
  Company Number: US-PFIZER INC-2006152228

PATIENT
  Sex: Male
  Weight: 102.1 kg

DRUGS (3)
  1. CELEBREX [Suspect]
     Indication: ARTHRITIS
     Dosage: DAILY DOSE:200MG
     Dates: start: 20040908, end: 20041103
  2. BEXTRA [Suspect]
     Indication: ARTHRITIS
     Dosage: DAILY DOSE:20MG
     Dates: start: 20041117
  3. VIOXX [Suspect]

REACTIONS (2)
  - AMNESIA [None]
  - ISCHAEMIC CARDIOMYOPATHY [None]
